FAERS Safety Report 9015300 (Version 1)
Quarter: 2013Q1

REPORT INFORMATION
  Report Type: Spontaneous
  Country: US (occurrence: None)
  Receive Date: 20130109
  Receipt Date: 20130109
  Transmission Date: 20140127
  Serious: Yes (Other)
  Sender: FDA-Public Use
  Company Number: None

PATIENT
  Sex: Female
  Weight: 78.93 kg

DRUGS (1)
  1. BALSALAZIDE [Suspect]
     Indication: COLITIS
     Route: 048
     Dates: start: 2010

REACTIONS (2)
  - Alopecia [None]
  - Colitis [None]
